FAERS Safety Report 22320221 (Version 2)
Quarter: 2023Q2

REPORT INFORMATION
  Report Type: Report from Study
  Country: US (occurrence: US)
  Receive Date: 20230515
  Receipt Date: 20230601
  Transmission Date: 20230721
  Serious: Yes (Hospitalization)
  Sender: FDA-Public Use
  Company Number: US-PFIZER INC-PV202300084881

PATIENT
  Age: 55 Year
  Sex: Male

DRUGS (2)
  1. PAXLOVID [Interacting]
     Active Substance: NIRMATRELVIR\RITONAVIR
     Indication: COVID-19
     Dosage: UNK
     Route: 048
  2. CARIPRAZINE [Interacting]
     Active Substance: CARIPRAZINE
     Indication: Schizophrenia
     Dosage: UNK

REACTIONS (2)
  - Drug interaction [Unknown]
  - Depressed level of consciousness [Unknown]
